FAERS Safety Report 9601225 (Version 2)
Quarter: 2013Q4

REPORT INFORMATION
  Report Type: Spontaneous
  Country: DE (occurrence: DE)
  Receive Date: 20131005
  Receipt Date: 20131005
  Transmission Date: 20140711
  Serious: Yes (Other)
  Sender: FDA-Public Use
  Company Number: DE-B.I. PHARMACEUTICALS,INC./RIDGEFIELD-2013-BI-29768DE

PATIENT
  Age: 82 Year
  Sex: Female
  Weight: 60 kg

DRUGS (4)
  1. PRADAXA [Suspect]
     Indication: ATRIAL FIBRILLATION
     Dosage: 220 MG
     Dates: start: 201305
  2. BISOPROLOL 2.5 [Concomitant]
     Indication: ATRIAL FIBRILLATION
  3. SIMVASTATIN 20 [Concomitant]
     Indication: DYSLIPIDAEMIA
  4. FERRUM MEDICATION [Concomitant]

REACTIONS (11)
  - Abnormal faeces [Recovered/Resolved with Sequelae]
  - Haemorrhoids [Recovered/Resolved with Sequelae]
  - Eczema [Recovered/Resolved with Sequelae]
  - Nausea [Recovered/Resolved with Sequelae]
  - Flatulence [Recovered/Resolved with Sequelae]
  - Abdominal discomfort [Not Recovered/Not Resolved]
  - Decreased appetite [Not Recovered/Not Resolved]
  - Painful defaecation [Unknown]
  - Mucous membrane disorder [Unknown]
  - Haemorrhoidal haemorrhage [Not Recovered/Not Resolved]
  - Eructation [Not Recovered/Not Resolved]
